FAERS Safety Report 4589742-5 (Version None)
Quarter: 2005Q2

REPORT INFORMATION
  Report Type: 
  Country: None (occurrence: None)
  Receive Date: 20050217
  Receipt Date: 20050207
  Transmission Date: 20051028
  Serious: Yes (Death)
  Sender: FDA-Public Use
  Company Number: 2005-UK-00214IE

PATIENT
  Age: 95 Year
  Sex: Female

DRUGS (3)
  1. MOBIC [Suspect]
     Indication: GOUT
  2. ARCOXIA [Suspect]
     Dosage: 90 MG DAILY PO
     Route: 048
  3. FUROSEMIDE [Concomitant]

REACTIONS (1)
  - HAEMATEMESIS [None]
